FAERS Safety Report 7240811-0 (Version None)
Quarter: 2011Q1

REPORT INFORMATION
  Report Type: 
  Country: None (occurrence: None)
  Receive Date: 20110120
  Receipt Date: 20110120
  Transmission Date: 20110831
  Serious: No
  Sender: FDA-Public Use
  Company Number: None

PATIENT
  Age: 66 Year
  Sex: Female
  Weight: 59.4212 kg

DRUGS (1)
  1. TRICOR [Suspect]
     Indication: BLOOD TRIGLYCERIDES INCREASED
     Dosage: 1 TABLET DAILY MOUTH
     Route: 048
     Dates: start: 20101018

REACTIONS (2)
  - GASTROINTESTINAL PAIN [None]
  - CONSTIPATION [None]
